FAERS Safety Report 26014115 (Version 1)
Quarter: 2025Q4

REPORT INFORMATION
  Report Type: Spontaneous
  Country: IR (occurrence: IR)
  Receive Date: 20251108
  Receipt Date: 20251108
  Transmission Date: 20260117
  Serious: Yes (Hospitalization, Other)
  Sender: UNICHEM
  Company Number: IR-UNICHEM LABORATORIES LIMITED-UNI-2025-IR-003669

PATIENT

DRUGS (6)
  1. METRONIDAZOLE [Suspect]
     Active Substance: METRONIDAZOLE
     Indication: Diarrhoea haemorrhagic
     Dosage: UNK
     Route: 048
  2. METRONIDAZOLE [Suspect]
     Active Substance: METRONIDAZOLE
     Dosage: MILLIGRAM
     Route: 042
  3. BACLOFEN [Suspect]
     Active Substance: BACLOFEN
     Indication: Dystonia
     Dosage: 10 MILLIGRAM, TID
     Route: 065
  4. BACLOFEN [Suspect]
     Active Substance: BACLOFEN
     Indication: Muscle spasticity
  5. TRIHEXYPHENIDYL [Suspect]
     Active Substance: TRIHEXYPHENIDYL
     Indication: Dystonia
     Dosage: 6 MILLIGRAM, TID
     Route: 065
  6. TRIHEXYPHENIDYL [Suspect]
     Active Substance: TRIHEXYPHENIDYL
     Indication: Muscle spasticity

REACTIONS (4)
  - Dystonia [Recovering/Resolving]
  - Deafness [Unknown]
  - Toxic encephalopathy [Recovering/Resolving]
  - Therapeutic product effect incomplete [Unknown]
